FAERS Safety Report 7751330-7 (Version None)
Quarter: 2011Q3

REPORT INFORMATION
  Report Type: 
  Country: None (occurrence: None)
  Receive Date: 20110914
  Receipt Date: 20110901
  Transmission Date: 20111222
  Serious: Yes (Other)
  Sender: FDA-Public Use
  Company Number: US-BAYER-200829333NA

PATIENT
  Sex: Male
  Weight: 82 kg

DRUGS (48)
  1. OMNISCAN [Suspect]
     Indication: NUCLEAR MAGNETIC RESONANCE IMAGING
     Dosage: 20 ML, UNK
     Dates: start: 20030402, end: 20110402
  2. PIOGLITAZONE [Concomitant]
     Dosage: 45 MG, QD
  3. MAGNEVIST [Suspect]
     Indication: NUCLEAR MAGNETIC RESONANCE IMAGING
     Dosage: UNK ML, UNK
     Dates: start: 20031010
  4. MAGNEVIST [Suspect]
     Indication: ANGIOGRAM
     Dosage: UNK
     Dates: start: 20040504, end: 20040504
  5. CONTRAST MEDIA [Suspect]
     Indication: NUCLEAR MAGNETIC RESONANCE IMAGING
     Dosage: UNK
     Dates: start: 19901213
  6. NEURONTIN [Concomitant]
  7. PROGRAF [Concomitant]
     Dosage: 0.5 MG, BID
  8. OMNISCAN [Suspect]
     Indication: ANGIOGRAM
     Dosage: UNK
     Dates: start: 20040504, end: 20040504
  9. VISIPAQUE [Suspect]
     Indication: ANGIOPLASTY
     Dosage: 100 ML, UNK
     Dates: start: 20050315
  10. CONTRAST MEDIA [Suspect]
     Dosage: UNK
     Dates: start: 20001026
  11. ASPIRIN [Concomitant]
  12. PLAVIX [Concomitant]
     Dosage: DAILY DOSE 75 MG
  13. RENAGEL [Concomitant]
  14. RANEXA [Concomitant]
     Dosage: 500 MG, QD
  15. FLOMAX [Concomitant]
  16. METOPROLOL [Concomitant]
  17. ASPIRIN [Concomitant]
     Dosage: 81 MG, QD
  18. INDERAL [Concomitant]
  19. AMBIEN [Concomitant]
  20. AVAPRO [Concomitant]
  21. GADOLINIUM IN UNSPECIFIED DRUG [Suspect]
     Indication: NUCLEAR MAGNETIC RESONANCE IMAGING
     Dates: start: 20050304, end: 20050304
  22. ARANESP [Concomitant]
  23. NEPHROVITE [VIT C,VIT H,B5,B12,B9,B3,B6,B2,B1 HCL] [Concomitant]
  24. ALLOPURINOL [Concomitant]
  25. COREG [Concomitant]
     Dosage: 3.125 MG, BID
  26. IRON SUPPLEMENT [Concomitant]
  27. LOPRESSOR [Concomitant]
  28. DEMADEX [Concomitant]
  29. MAGNEVIST [Suspect]
     Indication: ANGIOPLASTY
     Dosage: UNK
     Dates: start: 20050304, end: 20050304
  30. MULTIHANCE [Suspect]
     Indication: NUCLEAR MAGNETIC RESONANCE IMAGING
  31. GADOLINIUM IN UNSPECIFIED DRUG [Suspect]
     Dosage: UNK
     Dates: start: 20050304
  32. CONTRAST MEDIA [Suspect]
     Dosage: UNK
     Dates: start: 20010904
  33. PREDNISONE [Concomitant]
     Dosage: DAILY DOSE 5 MG
  34. JANUVIA [Concomitant]
     Dosage: 100 MG, QD
  35. IMDUR [Concomitant]
  36. DILTIAZEM [Concomitant]
  37. LIPITOR [Concomitant]
     Dosage: 40 MG, QD
  38. NOVOLOG MIX 70/30 [Concomitant]
  39. DIOVAN [Concomitant]
  40. OPTIMARK [Suspect]
     Indication: NUCLEAR MAGNETIC RESONANCE IMAGING
  41. PROHANCE [Suspect]
     Indication: NUCLEAR MAGNETIC RESONANCE IMAGING
     Dosage: 19 ML, UNK
     Dates: start: 20030508
  42. PROHANCE [Suspect]
     Dosage: 19 UNK, UNK
     Dates: start: 20031116
  43. GADOLINIUM IN UNSPECIFIED DRUG [Suspect]
     Dosage: UNK
     Dates: start: 20050315
  44. MYCOPHENOLATE MOFETIL (CELLCEPT) [Concomitant]
     Dosage: DAILY DOSE 500 MG
  45. COZAAR [Concomitant]
     Dosage: 50 MG, QD
  46. LASIX [Concomitant]
     Dosage: 40 MG, BID
  47. GABAPENTIN [Concomitant]
     Dosage: 300 MG, QD
  48. STARLIX [Concomitant]

REACTIONS (10)
  - MUSCULAR WEAKNESS [None]
  - ANXIETY [None]
  - BONE PAIN [None]
  - INJURY [None]
  - MOBILITY DECREASED [None]
  - RENAL FAILURE CHRONIC [None]
  - PAIN [None]
  - NEPHROGENIC SYSTEMIC FIBROSIS [None]
  - GENERAL PHYSICAL HEALTH DETERIORATION [None]
  - EMOTIONAL DISTRESS [None]
